FAERS Safety Report 24348915 (Version 1)
Quarter: 2024Q3

REPORT INFORMATION
  Report Type: Spontaneous
  Country: CA (occurrence: CA)
  Receive Date: 20240923
  Receipt Date: 20240923
  Transmission Date: 20241017
  Serious: Yes (Hospitalization, Other)
  Sender: AUROBINDO
  Company Number: CA-AUROBINDO-AUR-APL-2024-044993

PATIENT
  Age: 53 Year
  Sex: Male

DRUGS (10)
  1. ACYCLOVIR [Suspect]
     Active Substance: ACYCLOVIR
     Indication: Herpes simplex
     Dosage: 10 MILLIGRAM/KILOGRAM, 3 TIMES A DAY
     Route: 042
     Dates: start: 2017
  2. CEPHALEXIN [Suspect]
     Active Substance: CEPHALEXIN
     Indication: Antibiotic therapy
     Dosage: UNK
     Route: 065
  3. VALACYCLOVIR HYDROCHLORIDE [Suspect]
     Active Substance: VALACYCLOVIR HYDROCHLORIDE
     Indication: Herpes simplex
     Dosage: UNK,  HIGH DOSE (EVERY 4 WEEKS)
     Route: 048
  4. CIDOFOVIR [Suspect]
     Active Substance: CIDOFOVIR
     Indication: Herpes simplex
     Dosage: UNK
     Route: 061
     Dates: start: 2020
  5. CIDOFOVIR [Suspect]
     Active Substance: CIDOFOVIR
     Dosage: UNK
     Route: 042
     Dates: start: 2020
  6. FOSCARNET [Suspect]
     Active Substance: FOSCARNET
     Indication: Herpes simplex
     Dosage: 90 MILLIGRAM/KILOGRAM, TWO TIMES A DAY
     Route: 042
  7. FOSCARNET [Suspect]
     Active Substance: FOSCARNET
     Dosage: 1 PERCENT
     Route: 061
  8. IMIQUIMOD [Suspect]
     Active Substance: IMIQUIMOD
     Indication: Herpes simplex
     Dosage: UNK
     Route: 061
     Dates: start: 2018
  9. PRITELIVIR [Suspect]
     Active Substance: PRITELIVIR
     Indication: Herpes simplex
     Dosage: 400 MILLIGRAM, DAILY
     Route: 065
     Dates: start: 2022
  10. PRITELIVIR [Suspect]
     Active Substance: PRITELIVIR
     Dosage: 100 MILLIGRAM, DAILY
     Route: 065
     Dates: start: 2022

REACTIONS (2)
  - Drug ineffective [Unknown]
  - Drug resistance [Unknown]
